FAERS Safety Report 17991114 (Version 1)
Quarter: 2020Q3

REPORT INFORMATION
  Report Type: Spontaneous
  Country: CA (occurrence: CA)
  Receive Date: 20200707
  Receipt Date: 20200707
  Transmission Date: 20201103
  Serious: Yes (Hospitalization)
  Sender: FDA-Public Use
  Company Number: CA-TEVA-2020-CA-1796888

PATIENT
  Age: 49 Year
  Sex: Female

DRUGS (1)
  1. DOXORUBICIN INJECTION [Suspect]
     Active Substance: DOXORUBICIN
     Route: 065

REACTIONS (1)
  - Febrile neutropenia [Recovering/Resolving]
